FAERS Safety Report 9878592 (Version 1)
Quarter: 2014Q1

REPORT INFORMATION
  Report Type: Spontaneous
  Country: JP (occurrence: JP)
  Receive Date: 20140206
  Receipt Date: 20140206
  Transmission Date: 20141002
  Serious: Yes (Other)
  Sender: FDA-Public Use
  Company Number: JP-PFIZER INC-2014032270

PATIENT
  Sex: Male

DRUGS (2)
  1. ALDACTONE A [Suspect]
     Dosage: 2 DF, UNK
     Route: 048
  2. LASIX [Suspect]
     Indication: PULMONARY CONGESTION
     Dosage: 3 DF, UNK
     Route: 048

REACTIONS (4)
  - Renal impairment [Unknown]
  - Cardiac failure congestive [Unknown]
  - Dehydration [Unknown]
  - Weight increased [Unknown]
